FAERS Safety Report 9999379 (Version 3)
Quarter: 2014Q3

REPORT INFORMATION
  Report Type: Spontaneous
  Country: CA (occurrence: CA)
  Receive Date: 20140312
  Receipt Date: 20140828
  Transmission Date: 20150326
  Serious: Yes (Other)
  Sender: FDA-Public Use
  Company Number: 2014SP000691

PATIENT
  Age: 28 Year
  Sex: Female

DRUGS (5)
  1. FLUPENTIXOL [Concomitant]
     Active Substance: FLUPENTIXOL
  2. BENZTROPINE [Concomitant]
     Active Substance: BENZTROPINE
  3. OLANZAPINE. [Concomitant]
     Active Substance: OLANZAPINE
  4. TOPIRAMATE. [Concomitant]
     Active Substance: TOPIRAMATE
  5. LATUDA [Suspect]
     Active Substance: LURASIDONE HYDROCHLORIDE
     Route: 048

REACTIONS (2)
  - Hypoaesthesia oral [Not Recovered/Not Resolved]
  - Dysarthria [Not Recovered/Not Resolved]
